FAERS Safety Report 8378696-1 (Version None)
Quarter: 2012Q2

REPORT INFORMATION
  Report Type: 
  Country: None (occurrence: None)
  Receive Date: 20120522
  Receipt Date: 20120518
  Transmission Date: 20120825
  Serious: Yes (Hospitalization, Other)
  Sender: FDA-Public Use
  Company Number: US-MERCK-1010USA00665

PATIENT
  Age: 55 Year
  Sex: Female
  Weight: 84 kg

DRUGS (10)
  1. LEVOXYL [Concomitant]
     Indication: HYPOTHYROIDISM
     Route: 065
  2. ADVAIR DISKUS 100/50 [Concomitant]
     Indication: ASTHMA
     Route: 065
  3. FOSAMAX [Suspect]
     Indication: STRESS FRACTURE
     Route: 048
     Dates: start: 19970101, end: 20011001
  4. CALCIUM (UNSPECIFIED) [Concomitant]
     Route: 048
  5. ALENDRONATE SODIUM [Suspect]
     Indication: OSTEOPOROSIS
     Route: 048
     Dates: start: 20080916
  6. FOSAMAX [Suspect]
     Route: 048
     Dates: start: 20011001, end: 20080101
  7. FOSAMAX [Suspect]
     Route: 048
     Dates: start: 20011001, end: 20080101
  8. FOSAMAX [Suspect]
     Indication: OSTEOPOROSIS
     Route: 048
     Dates: start: 19970101, end: 20011001
  9. PREMPRO [Concomitant]
     Indication: HORMONE REPLACEMENT THERAPY
     Route: 048
     Dates: start: 19970305
  10. ALENDRONATE SODIUM [Suspect]
     Indication: STRESS FRACTURE
     Route: 048
     Dates: start: 20080916

REACTIONS (23)
  - CYSTITIS [None]
  - BLOOD CHOLESTEROL INCREASED [None]
  - EYE INFECTION [None]
  - RIB FRACTURE [None]
  - ARTHROPOD BITE [None]
  - STERNAL FRACTURE [None]
  - ROAD TRAFFIC ACCIDENT [None]
  - DYSPEPSIA [None]
  - TREATMENT NONCOMPLIANCE [None]
  - LOW TURNOVER OSTEOPATHY [None]
  - FRACTURE NONUNION [None]
  - FOOT FRACTURE [None]
  - RHEUMATOID ARTHRITIS [None]
  - NIGHT SWEATS [None]
  - BONE METABOLISM DISORDER [None]
  - STRESS FRACTURE [None]
  - OSTEOPENIA [None]
  - IMPAIRED HEALING [None]
  - WEIGHT INCREASED [None]
  - FEMUR FRACTURE [None]
  - FALL [None]
  - PAIN IN EXTREMITY [None]
  - ALOPECIA [None]
